FAERS Safety Report 4518217-4 (Version None)
Quarter: 2004Q4

REPORT INFORMATION
  Report Type: 
  Country: None (occurrence: None)
  Receive Date: 20041130
  Receipt Date: 20041116
  Transmission Date: 20050328
  Serious: Yes (Hospitalization)
  Sender: FDA-Public Use
  Company Number: US_0404102664

PATIENT
  Age: 88 Year
  Sex: Female
  Weight: 49 kg

DRUGS (8)
  1. FORTEO [Suspect]
     Indication: OSTEOPOROSIS
     Dosage: 20 UG DAY
     Dates: start: 20040416
  2. AMIODARONE HYDROCHLORIDE [Concomitant]
  3. ASPIRIN [Concomitant]
  4. VITAMIN C [Concomitant]
  5. ACTONEL [Concomitant]
  6. WARFARIN SODIUM [Concomitant]
  7. VITAMIN D [Concomitant]
  8. ... [Concomitant]

REACTIONS (13)
  - ASTHENIA [None]
  - ASTHMA [None]
  - BRONCHITIS ACUTE [None]
  - CONDITION AGGRAVATED [None]
  - EMOTIONAL DISTRESS [None]
  - FATIGUE [None]
  - INJECTION SITE HAEMORRHAGE [None]
  - LARYNGITIS [None]
  - MALAISE [None]
  - NAUSEA [None]
  - PHARMACEUTICAL PRODUCT COMPLAINT [None]
  - THROAT IRRITATION [None]
  - VIRAL INFECTION [None]
